FAERS Safety Report 8545945-6 (Version None)
Quarter: 2012Q3

REPORT INFORMATION
  Report Type: 
  Country: None (occurrence: None)
  Receive Date: 20120727
  Receipt Date: 20120214
  Transmission Date: 20120928
  Serious: No
  Sender: FDA-Public Use
  Company Number: US-ASTRAZENECA-2011SE71273

PATIENT
  Age: 49 Year
  Sex: Male
  Weight: 77.1 kg

DRUGS (7)
  1. SEROQUEL XR [Suspect]
     Indication: DEPRESSION
     Route: 048
     Dates: start: 20110701
  2. SEROQUEL XR [Suspect]
     Indication: ANXIETY
     Route: 048
     Dates: start: 20110701
  3. CYMBALTA [Concomitant]
     Indication: DEPRESSION
     Dates: start: 20110401
  4. CYMBALTA [Concomitant]
     Indication: ANXIETY
     Dates: start: 20110401
  5. XANAX [Concomitant]
     Indication: DEPRESSION
     Dosage: AS REQUIRED
     Dates: start: 20110201
  6. XANAX [Concomitant]
     Indication: ANXIETY
     Dosage: AS REQUIRED
     Dates: start: 20110201
  7. XANAX XR [Concomitant]
     Indication: ANXIETY
     Dates: start: 20110201

REACTIONS (3)
  - DRUG DOSE OMISSION [None]
  - DRUG PRESCRIBING ERROR [None]
  - INSOMNIA [None]
